FAERS Safety Report 25868950 (Version 1)
Quarter: 2025Q3

REPORT INFORMATION
  Report Type: Spontaneous
  Country: US (occurrence: None)
  Receive Date: 20250930
  Receipt Date: 20250930
  Transmission Date: 20251021
  Serious: Yes (Hospitalization)
  Sender: FDA-CTU
  Company Number: None

PATIENT
  Age: 48 Year
  Sex: Male
  Weight: 80 kg

DRUGS (13)
  1. MYCOPHENOLIC ACID [Suspect]
     Active Substance: MYCOPHENOLIC ACID
     Indication: Renal transplant
     Dosage: FREQUENCY : TWICE A DAY;?
     Route: 048
     Dates: start: 20200807
  2. POTASSIUM CHLORIDE [Suspect]
     Active Substance: POTASSIUM CHLORIDE
  3. PHOSPHA NEUTRAL [Concomitant]
  4. PRAVASTATIN [Concomitant]
     Active Substance: PRAVASTATIN
  5. CARVEDILOL [Concomitant]
     Active Substance: CARVEDILOL
  6. PREDNISONE [Concomitant]
     Active Substance: PREDNISONE
  7. FAMOTIDINE [Concomitant]
     Active Substance: FAMOTIDINE
  8. AMIODARONE [Concomitant]
     Active Substance: AMIODARONE
  9. TACROLIMUS [Concomitant]
     Active Substance: TACROLIMUS
  10. LANTUS SOLOSTAR [Concomitant]
     Active Substance: INSULIN GLARGINE
  11. SULFAMETHOXAZOLE\TRIMETHOPRIM [Concomitant]
     Active Substance: SULFAMETHOXAZOLE\TRIMETHOPRIM
  12. ELIQUIS [Concomitant]
     Active Substance: APIXABAN
  13. AMLODIPINE [Concomitant]
     Active Substance: AMLODIPINE BESYLATE

REACTIONS (1)
  - Kidney transplant rejection [None]

NARRATIVE: CASE EVENT DATE: 20250909
